FAERS Safety Report 24630146 (Version 1)
Quarter: 2024Q4

REPORT INFORMATION
  Report Type: Spontaneous
  Country: JP (occurrence: JP)
  Receive Date: 20241118
  Receipt Date: 20241118
  Transmission Date: 20250114
  Serious: Yes (Hospitalization)
  Sender: STRIDES
  Company Number: JP-STRIDES ARCOLAB LIMITED-2024SP014709

PATIENT
  Age: 89 Year
  Sex: Female

DRUGS (4)
  1. PREDNISOLONE [Suspect]
     Active Substance: PREDNISOLONE
     Indication: Polymyalgia rheumatica
     Dosage: 10 MILLIGRAM
     Route: 065
  2. MEROPENEM [Concomitant]
     Active Substance: MEROPENEM
     Indication: Bacterial translocation
     Dosage: 3 GRAM  (PER DAY)
     Route: 065
  3. MEROPENEM [Concomitant]
     Active Substance: MEROPENEM
     Indication: Sepsis
  4. AMLODIPINE [Concomitant]
     Active Substance: AMLODIPINE BESYLATE
     Indication: Hypertension
     Dosage: 5 MILLIGRAM
     Route: 065

REACTIONS (5)
  - Thrombocytopenia [Recovered/Resolved]
  - Mental status changes [Recovered/Resolved]
  - Citrobacter infection [Recovered/Resolved]
  - Japanese spotted fever [Recovered/Resolved]
  - Meningitis aseptic [Recovered/Resolved]
